FAERS Safety Report 18443489 (Version 2)
Quarter: 2020Q4

REPORT INFORMATION
  Report Type: Spontaneous
  Country: US (occurrence: US)
  Receive Date: 20201029
  Receipt Date: 20201112
  Transmission Date: 20210114
  Serious: Yes (Hospitalization)
  Sender: FDA-Public Use
  Company Number: US-TEVA-2020-US-1842073

PATIENT
  Age: 45 Year
  Sex: Male

DRUGS (13)
  1. FLUCONAZOLE. [Suspect]
     Active Substance: FLUCONAZOLE
     Indication: MENINGITIS CRYPTOCOCCAL
     Route: 065
     Dates: start: 201707, end: 201710
  2. VORICONAZOLE. [Suspect]
     Active Substance: VORICONAZOLE
     Indication: MENINGITIS CRYPTOCOCCAL
     Dosage: 900 MILLIGRAM DAILY;
     Route: 065
     Dates: start: 201710, end: 2018
  3. LIPOSOMAL AMPHOTERICIN B [Suspect]
     Active Substance: AMPHOTERICIN B
     Indication: MENINGITIS CRYPTOCOCCAL
     Dosage: 6 WEEK REGIMEN
     Route: 042
     Dates: start: 201710
  4. DOLUTEGRAVIR [Suspect]
     Active Substance: DOLUTEGRAVIR
     Indication: HIV INFECTION
     Route: 065
     Dates: start: 201706
  5. LAMIVUDINE. [Suspect]
     Active Substance: LAMIVUDINE
     Indication: HIV INFECTION
     Route: 065
     Dates: start: 201706
  6. LIPOSOMAL AMPHOTERICIN B [Suspect]
     Active Substance: AMPHOTERICIN B
     Indication: MENINGITIS CRYPTOCOCCAL
     Dosage: 2 WEEK REGIMEN
     Route: 042
     Dates: start: 201707
  7. LIPOSOMAL AMPHOTERICIN B [Suspect]
     Active Substance: AMPHOTERICIN B
     Indication: MENINGITIS CRYPTOCOCCAL
     Dosage: 6 WEEK REGIMEN
     Route: 042
     Dates: start: 201807
  8. FLUCYTOSINE. [Suspect]
     Active Substance: FLUCYTOSINE
     Indication: MENINGITIS CRYPTOCOCCAL
     Dosage: 6 WEEK REGIMEN
     Route: 048
     Dates: start: 201710
  9. FLUCYTOSINE. [Suspect]
     Active Substance: FLUCYTOSINE
     Indication: MENINGITIS CRYPTOCOCCAL
     Dosage: 6 WEEK REGIMEN
     Route: 048
     Dates: start: 201807
  10. FLUCYTOSINE. [Suspect]
     Active Substance: FLUCYTOSINE
     Indication: MENINGITIS CRYPTOCOCCAL
     Dosage: 2 WEEK REGIMEN
     Route: 048
     Dates: start: 201707
  11. FLUCYTOSINE. [Suspect]
     Active Substance: FLUCYTOSINE
     Indication: MENINGITIS CRYPTOCOCCAL
     Dosage: 6 WEEK REGIMEN
     Route: 048
     Dates: start: 201804
  12. ABACAVIR. [Suspect]
     Active Substance: ABACAVIR
     Indication: HIV INFECTION
     Route: 065
     Dates: start: 201706
  13. LIPOSOMAL AMPHOTERICIN B [Suspect]
     Active Substance: AMPHOTERICIN B
     Indication: MENINGITIS CRYPTOCOCCAL
     Dosage: 6 WEEK REGIMEN
     Route: 042
     Dates: start: 201804

REACTIONS (2)
  - Immune reconstitution inflammatory syndrome [Recovered/Resolved]
  - Treatment failure [Unknown]
